FAERS Safety Report 4704131-8 (Version None)
Quarter: 2005Q2

REPORT INFORMATION
  Report Type: 
  Country: None (occurrence: None)
  Receive Date: 20050628
  Receipt Date: 20050610
  Transmission Date: 20051028
  Serious: Yes (Hospitalization)
  Sender: FDA-Public Use
  Company Number: USA040360442

PATIENT
  Age: 82 Year
  Sex: Female
  Weight: 47 kg

DRUGS (2)
  1. FORTEO [Suspect]
     Indication: MULTIPLE FRACTURES
     Dosage: 20 UG DAY
     Dates: start: 20050401
  2. FORTEO [Suspect]
     Indication: SPINAL FRACTURE
     Dosage: 20 UG DAY
     Dates: start: 20050401

REACTIONS (5)
  - DIZZINESS [None]
  - FALL [None]
  - HIP FRACTURE [None]
  - PAIN [None]
  - PHARMACEUTICAL PRODUCT COMPLAINT [None]
